FAERS Safety Report 10844379 (Version 1)
Quarter: 2020Q3

REPORT INFORMATION
  Report Type: Spontaneous
  Country: PT (occurrence: PT)
  Receive Date: 20150220
  Receipt Date: 20150220
  Transmission Date: 20201105
  Serious: Yes (Disabling)
  Sender: FDA-Public Use
  Company Number: PT-009507513-1502PRT007696

PATIENT
  Age: 49 Year
  Sex: Female
  Weight: 63 kg

DRUGS (3)
  1. DIPROFOS DEPOT (BETAMETHASONE DIPROPIONATE\BETAMETHASONE SODIUM PHOSPHATE) [Suspect]
     Active Substance: BETAMETHASONE DIPROPIONATE\BETAMETHASONE SODIUM PHOSPHATE
     Indication: HERNIA PAIN
     Dosage: 1 DF, PRN
     Route: 030
     Dates: start: 20150128, end: 20150128
  2. ZOELY [Concomitant]
     Active Substance: ESTRADIOL\NOMEGESTROL ACETATE
     Indication: ORAL CONTRACEPTION
     Dosage: HAS BEEN TAKING FOR SEVERAL YEARS
     Route: 048
  3. ETORICOXIB. [Suspect]
     Active Substance: ETORICOXIB
     Indication: HERNIA PAIN
     Route: 048
     Dates: start: 20150128

REACTIONS (4)
  - Vertigo [Recovered/Resolved]
  - Hypoacusis [Not Recovered/Not Resolved]
  - Tinnitus [Not Recovered/Not Resolved]
  - Fall [Recovered/Resolved]

NARRATIVE: CASE EVENT DATE: 20150129
